FAERS Safety Report 10288152 (Version 1)
Quarter: 2014Q3

REPORT INFORMATION
  Report Type: Report from Study
  Country: US (occurrence: US)
  Receive Date: 20140709
  Receipt Date: 20140709
  Transmission Date: 20150326
  Serious: Yes (Hospitalization, Other)
  Sender: FDA-Public Use
  Company Number: US-PURDUE-USA-2014-0115503

PATIENT
  Age: 75 Year
  Sex: Female

DRUGS (2)
  1. OXYCONTIN [Suspect]
     Active Substance: OXYCODONE HYDROCHLORIDE
     Dosage: UNK
     Route: 048
     Dates: start: 2003
  2. OXYCONTIN [Suspect]
     Active Substance: OXYCODONE HYDROCHLORIDE
     Indication: OSTEOARTHRITIS
     Dosage: 80 MG, BID
     Route: 048
     Dates: start: 20140410

REACTIONS (6)
  - Diarrhoea [Unknown]
  - Pneumonia [Recovered/Resolved]
  - Chest pain [Unknown]
  - Staphylococcal infection [Recovered/Resolved]
  - Lower respiratory tract infection [Unknown]
  - Abasia [Unknown]

NARRATIVE: CASE EVENT DATE: 201404
